FAERS Safety Report 4781469-X (Version None)
Quarter: 2005Q3

REPORT INFORMATION
  Report Type: 
  Country: None (occurrence: None)
  Receive Date: 20050927
  Receipt Date: 20050915
  Transmission Date: 20060218
  Serious: Yes (Disabling)
  Sender: FDA-Public Use
  Company Number: 2005123754

PATIENT
  Age: 57 Year
  Sex: Female

DRUGS (5)
  1. CARDURA XL [Suspect]
     Indication: ILL-DEFINED DISORDER
     Dosage: 4 MG (DAILY), ORAL
     Route: 048
     Dates: start: 20030301
  2. BENDROFLUMETHIAZIDE (BENDROFLUMETHIAZIDE) [Concomitant]
  3. ESTRADIOL [Concomitant]
  4. ASPIRIN [Concomitant]
  5. RAMIPRIL [Concomitant]

REACTIONS (3)
  - BACK PAIN [None]
  - MUSCLE SPASMS [None]
  - PARKINSON'S DISEASE [None]
